FAERS Safety Report 22143428 (Version 1)
Quarter: 2023Q1

REPORT INFORMATION
  Report Type: Report from Study
  Country: US (occurrence: US)
  Receive Date: 20230327
  Receipt Date: 20230327
  Transmission Date: 20230418
  Serious: Yes (Hospitalization)
  Sender: FDA-Public Use
  Company Number: US-ABBVIE-4705161

PATIENT
  Age: 93 Year
  Sex: Male

DRUGS (1)
  1. IMBRUVICA [Suspect]
     Active Substance: IBRUTINIB
     Indication: Waldenstrom^s macroglobulinaemia
     Route: 048
     Dates: start: 20220127

REACTIONS (7)
  - Fall [Unknown]
  - Heart rate abnormal [Unknown]
  - Road traffic accident [Unknown]
  - Oxygen saturation decreased [Unknown]
  - Contusion [Unknown]
  - Blood pressure decreased [Unknown]
  - Computerised tomogram head abnormal [Unknown]

NARRATIVE: CASE EVENT DATE: 20230301
